FAERS Safety Report 22101284 (Version 1)
Quarter: 2023Q1

REPORT INFORMATION
  Report Type: Spontaneous
  Country: ES (occurrence: ES)
  Receive Date: 20230316
  Receipt Date: 20230316
  Transmission Date: 20230417
  Serious: Yes (Other)
  Sender: FDA-Public Use
  Company Number: ES-ALKEM LABORATORIES LIMITED-ES-ALKEM-2022-07905

PATIENT
  Age: 55 Year
  Sex: Female

DRUGS (14)
  1. CIPROFLOXACIN [Interacting]
     Active Substance: CIPROFLOXACIN
     Indication: Evidence based treatment
     Dosage: 500 MILLIGRAM, BID (EVERY 12 HOUR)
     Route: 065
     Dates: start: 2010
  2. TIZANIDINE [Interacting]
     Active Substance: TIZANIDINE
     Indication: Muscle spasticity
     Dosage: 4 MILLIGRAM, TID EVERY 8 HOUR
     Route: 065
  3. TIZANIDINE [Interacting]
     Active Substance: TIZANIDINE
     Indication: Neuralgia
  4. ACENOCOUMAROL [Concomitant]
     Active Substance: ACENOCOUMAROL
     Indication: Pulmonary embolism
     Dosage: UNK
     Route: 065
  5. ALENDRONATE [Concomitant]
     Active Substance: ALENDRONATE SODIUM
     Indication: Product used for unknown indication
     Dosage: 70 MILLIGRAM, ONCE WEEKLY
     Route: 065
     Dates: start: 2005
  6. BACLOFEN [Concomitant]
     Active Substance: BACLOFEN
     Indication: Muscle spasticity
     Dosage: 25 MILLIGRAM EVERY 8 HOURS
     Route: 065
  7. BACLOFEN [Concomitant]
     Active Substance: BACLOFEN
     Indication: Neuralgia
  8. CALCIUM CARBONATE [Concomitant]
     Active Substance: CALCIUM CARBONATE
     Indication: Product used for unknown indication
     Dosage: 2.5 GRAM, QD
     Route: 065
     Dates: start: 2005
  9. CHOLECALCIFEROL [Concomitant]
     Active Substance: CHOLECALCIFEROL
     Indication: Product used for unknown indication
     Dosage: 880 INTERNATIONAL UNIT, QD
     Route: 065
     Dates: start: 2005
  10. CITALOPRAM [Concomitant]
     Active Substance: CITALOPRAM HYDROBROMIDE
     Indication: Product used for unknown indication
     Dosage: 20 MILLIGRAM, QD
     Route: 065
  11. ENALAPRIL [Concomitant]
     Active Substance: ENALAPRIL
     Indication: Product used for unknown indication
     Dosage: 20 MILLIGRAM, QD
     Route: 065
     Dates: start: 2005
  12. GABAPENTIN [Concomitant]
     Active Substance: GABAPENTIN
     Indication: Muscle spasticity
     Dosage: 300 MILLIGRAM EVERY 8 HOURS
     Route: 065
  13. GABAPENTIN [Concomitant]
     Active Substance: GABAPENTIN
     Indication: Neuralgia
  14. LEVOTHYROXINE [Concomitant]
     Active Substance: LEVOTHYROXINE
     Indication: Product used for unknown indication
     Dosage: 50-75 ?G, QD
     Route: 065
     Dates: start: 2005

REACTIONS (2)
  - Hallucinations, mixed [Unknown]
  - Drug interaction [Unknown]
